FAERS Safety Report 16010267 (Version 2)
Quarter: 2019Q2

REPORT INFORMATION
  Report Type: Spontaneous
  Country: JP (occurrence: JP)
  Receive Date: 20190225
  Receipt Date: 20190405
  Transmission Date: 20190711
  Serious: Yes (Hospitalization)
  Sender: FDA-Public Use
  Company Number: JP-ROCHE-2271911

PATIENT
  Age: 84 Year
  Sex: Female
  Weight: 55 kg

DRUGS (8)
  1. DENOTAS [Concomitant]
     Active Substance: CALCIUM CARBONATE\CHOLECALCIFEROL\MAGNESIUM CARBONATE
     Dosage: DOSE INTERVAL UNCERTAINTY
     Route: 048
     Dates: start: 20141022
  2. HERCEPTIN [Suspect]
     Active Substance: TRASTUZUMAB
     Indication: BREAST CANCER
     Dosage: DOSAGE IS UNCERTAIN.
     Route: 041
     Dates: start: 20181107, end: 20181107
  3. PRALIA [Concomitant]
     Active Substance: DENOSUMAB
     Dosage: DOSAGE IS UNCERTAIN.
     Route: 065
     Dates: start: 20141022
  4. HERCEPTIN [Suspect]
     Active Substance: TRASTUZUMAB
     Dosage: DOSAGE IS UNCERTAIN.
     Route: 041
     Dates: start: 20181128, end: 20190109
  5. CANDESARTAN. [Concomitant]
     Active Substance: CANDESARTAN
     Dosage: DOSAGE IS UNCERTAIN.
     Route: 065
  6. PERJETA [Suspect]
     Active Substance: PERTUZUMAB
     Indication: BREAST CANCER
     Dosage: DOSAGE IS UNCERTAIN.
     Route: 041
     Dates: start: 20181107, end: 20181107
  7. PERJETA [Suspect]
     Active Substance: PERTUZUMAB
     Dosage: DOSAGE IS UNCERTAIN.
     Route: 041
     Dates: start: 20181128, end: 20190109
  8. ATORVASTATIN [Concomitant]
     Active Substance: ATORVASTATIN
     Dosage: DOSAGE IS UNCERTAIN.
     Route: 065

REACTIONS (1)
  - Acute respiratory failure [Recovered/Resolved]

NARRATIVE: CASE EVENT DATE: 20190109
